FAERS Safety Report 7064896-X (Version None)
Quarter: 2010Q4

REPORT INFORMATION
  Report Type: 
  Country: None (occurrence: None)
  Receive Date: 20101027
  Receipt Date: 19891205
  Transmission Date: 20110411
  Serious: Yes (Death)
  Sender: FDA-Public Use
  Company Number: US-ROCHE-890201156001

PATIENT
  Sex: Male
  Weight: 77.1 kg

DRUGS (6)
  1. INTERFERON ALFA-2A [Suspect]
     Indication: RENAL CELL CARCINOMA
     Route: 058
     Dates: start: 19891003, end: 19891127
  2. LOPRESSOR [Concomitant]
     Route: 065
  3. ALLOPURINOL [Concomitant]
     Route: 065
  4. COLBENEMID [Concomitant]
     Route: 065
  5. INDOCIN [Concomitant]
     Route: 065
  6. ZANTAC [Concomitant]
     Route: 065

REACTIONS (2)
  - MALIGNANT NEOPLASM PROGRESSION [None]
  - RAYNAUD'S PHENOMENON [None]
